FAERS Safety Report 19570615 (Version 3)
Quarter: 2021Q3

REPORT INFORMATION
  Report Type: Spontaneous
  Country: GB (occurrence: GB)
  Receive Date: 20210715
  Receipt Date: 20210915
  Transmission Date: 20211014
  Serious: Yes (Hospitalization, Other)
  Sender: FDA-Public Use
  Company Number: GB-SA-2021SA227903

PATIENT
  Age: 51 Year
  Sex: Female

DRUGS (153)
  1. DOCETAXEL. [Suspect]
     Active Substance: DOCETAXEL
     Dosage: 132 MG, Q3W
     Route: 042
     Dates: start: 20150925, end: 20151016
  2. ATEZOLIZUMAB. [Suspect]
     Active Substance: ATEZOLIZUMAB
     Dosage: 3600 MG
     Route: 042
  3. ATEZOLIZUMAB. [Suspect]
     Active Substance: ATEZOLIZUMAB
     Dosage: 1200 MG, TID
     Route: 042
     Dates: start: 20170510, end: 20170628
  4. CAPECITABINE. [Suspect]
     Active Substance: CAPECITABINE
     Indication: BREAST CANCER METASTATIC
     Dosage: 1500 MG
     Route: 048
     Dates: start: 20171128, end: 20171219
  5. CAPECITABINE. [Suspect]
     Active Substance: CAPECITABINE
     Indication: HER2 POSITIVE BREAST CANCER
     Dosage: 3500 MG, (MANUFACTURER UNKNOWN)
     Route: 048
     Dates: start: 20170905
  6. CAPECITABINE. [Suspect]
     Active Substance: CAPECITABINE
     Dosage: 3500 MG
     Route: 048
     Dates: start: 20170905, end: 20171128
  7. CAPECITABINE. [Suspect]
     Active Substance: CAPECITABINE
     Dosage: 3500 MG
     Route: 048
     Dates: start: 20170905
  8. TRASTUZUMAB. [Suspect]
     Active Substance: TRASTUZUMAB
     Dosage: 600 MG, Q3W
     Route: 042
     Dates: start: 20150924, end: 20150924
  9. ERIBULIN [Suspect]
     Active Substance: ERIBULIN
     Indication: BREAST CANCER METASTATIC
     Dosage: 2.5 MG, (DOSE FORM: 120)
     Route: 042
     Dates: start: 20180822, end: 20181010
  10. NERATINIB [Suspect]
     Active Substance: NERATINIB
     Dosage: UNK
  11. PERTUZUMAB. [Suspect]
     Active Substance: PERTUZUMAB
     Dosage: 840 MG, QD
     Route: 042
     Dates: start: 20150924, end: 20150924
  12. PERTUZUMAB. [Suspect]
     Active Substance: PERTUZUMAB
     Dosage: 420 MG, Q3W
     Route: 042
     Dates: start: 20151016, end: 20170324
  13. TRASTUZUMAB EMTANSINE [Suspect]
     Active Substance: ADO-TRASTUZUMAB EMTANSINE
     Dosage: 260 MG, TIW
     Route: 042
     Dates: start: 20150924, end: 20150924
  14. TRASTUZUMAB EMTANSINE [Suspect]
     Active Substance: ADO-TRASTUZUMAB EMTANSINE
     Dosage: 260 MG, Q3W
     Route: 042
     Dates: start: 20150924, end: 20150924
  15. AMOXICILLIN. [Concomitant]
     Active Substance: AMOXICILLIN
     Dosage: 500 MG, TID
     Route: 048
     Dates: start: 20160330, end: 20160406
  16. DOCUSATE [Concomitant]
     Active Substance: DOCUSATE
     Dosage: UNK
  17. DOCUSATE SODIUM. [Concomitant]
     Active Substance: DOCUSATE SODIUM
     Dosage: UNK
  18. HUMALOG [Concomitant]
     Active Substance: INSULIN LISPRO
     Dosage: UNK UNK, QD, (3 OT, QD (16 UNIT)   )
     Route: 058
  19. HUMALOG [Concomitant]
     Active Substance: INSULIN LISPRO
     Dosage: 16 IU, (PER 0.33 DAY)
     Route: 058
  20. HYOSCINE [Concomitant]
     Active Substance: SCOPOLAMINE
     Dosage: 20 MG
     Route: 065
     Dates: start: 20171219
  21. HYOSCINE N?BUTYLBROMIDE [Concomitant]
     Active Substance: BUTYLSCOPOLAMINE
     Dosage: 20 MG, (PER 0.33 DAY)
     Route: 048
     Dates: start: 20171219, end: 2018
  22. LACTULOSE. [Concomitant]
     Active Substance: LACTULOSE
     Indication: PRODUCT USED FOR UNKNOWN INDICATION
     Dosage: UNK
     Route: 065
  23. ONDANSETRON [Concomitant]
     Active Substance: ONDANSETRON
     Dosage: UNK
  24. ZOPICLONE [Concomitant]
     Active Substance: ZOPICLONE
     Dosage: 3.75 MG, QD
     Route: 048
     Dates: start: 20170812, end: 20170822
  25. DOCETAXEL. [Suspect]
     Active Substance: DOCETAXEL
     Dosage: 132 MG, Q3W
     Route: 042
     Dates: start: 20150925, end: 20151016
  26. DOCETAXEL. [Suspect]
     Active Substance: DOCETAXEL
     Dosage: 108 MG EVERY 3 WEEKS (CUMULATIVE DOSE TO FIRST REACTION: 704.7857 MG)
     Route: 042
     Dates: start: 20151016
  27. CAPECITABINE. [Suspect]
     Active Substance: CAPECITABINE
     Dosage: 1000 MG
     Route: 048
     Dates: start: 20171128, end: 20171219
  28. CAPECITABINE. [Suspect]
     Active Substance: CAPECITABINE
     Dosage: 1000 MG
     Route: 048
     Dates: start: 20171128, end: 20171219
  29. CARBOPLATIN. [Suspect]
     Active Substance: CARBOPLATIN
     Dosage: 240 MG, QW
     Route: 042
     Dates: start: 20181219, end: 20190117
  30. TRASTUZUMAB. [Suspect]
     Active Substance: TRASTUZUMAB
     Dosage: 260 MG, Q3W
     Route: 042
     Dates: start: 20150924, end: 20150924
  31. TRASTUZUMAB. [Suspect]
     Active Substance: TRASTUZUMAB
     Dosage: 450 MG, QOW
     Route: 042
     Dates: start: 20151016
  32. TRASTUZUMAB. [Suspect]
     Active Substance: TRASTUZUMAB
     Dosage: 450 MG, QOW
     Route: 042
     Dates: start: 20151016
  33. NERATINIB [Suspect]
     Active Substance: NERATINIB
     Indication: BREAST CANCER METASTATIC
     Dosage: 240 MG, QD, (MANUFACTURER UNKNOWN)
     Route: 048
     Dates: start: 20180220, end: 20180717
  34. PERTUZUMAB. [Suspect]
     Active Substance: PERTUZUMAB
     Dosage: 420 MG, Q3W
     Route: 042
     Dates: start: 20170324, end: 20170324
  35. AMOXICILLIN. [Concomitant]
     Active Substance: AMOXICILLIN
     Dosage: 1500 MG
     Route: 048
     Dates: start: 20160406
  36. AMOXICILLIN. [Concomitant]
     Active Substance: AMOXICILLIN
     Dosage: 1500 MG
     Route: 048
     Dates: start: 20160330, end: 20160406
  37. GLYCEROL [Concomitant]
     Active Substance: GLYCERIN
     Indication: PRODUCT USED FOR UNKNOWN INDICATION
     Dosage: 4 G
     Route: 048
     Dates: start: 20180511, end: 201805
  38. HUMALOG [Concomitant]
     Active Substance: INSULIN LISPRO
     Dosage: 16 DF, QD
     Route: 058
  39. HUMALOG [Concomitant]
     Active Substance: INSULIN LISPRO
     Dosage: 16 DF, QD,(0.33 DAY)
     Route: 058
  40. HYOSCINE [Concomitant]
     Active Substance: SCOPOLAMINE
     Indication: PRODUCT USED FOR UNKNOWN INDICATION
     Dosage: 20 MG, QD
     Route: 065
     Dates: start: 20171219
  41. LEVEMIR [Concomitant]
     Active Substance: INSULIN DETEMIR
     Dosage: UNK UNK, QD
     Route: 058
  42. LEVEMIR [Concomitant]
     Active Substance: INSULIN DETEMIR
     Dosage: UNK
     Route: 058
  43. DOCETAXEL. [Suspect]
     Active Substance: DOCETAXEL
     Dosage: 108 MG, Q3W
     Route: 042
     Dates: start: 20151016, end: 20160108
  44. DOCETAXEL. [Suspect]
     Active Substance: DOCETAXEL
     Dosage: 132 MILLIGRAM, Q3W (DOSE FORM:120; CUMULATIVE DOSE TO FIRST REACTION: 993.4048 MG)
     Route: 042
     Dates: start: 20150925, end: 20151016
  45. ATEZOLIZUMAB. [Suspect]
     Active Substance: ATEZOLIZUMAB
     Indication: BREAST CANCER METASTATIC
     Dosage: 1200 MG, Q3W
     Route: 042
     Dates: start: 20170510, end: 20170628
  46. ATEZOLIZUMAB. [Suspect]
     Active Substance: ATEZOLIZUMAB
     Dosage: 1200 MG, QOW
     Route: 042
     Dates: start: 20170510, end: 20170628
  47. ATEZOLIZUMAB. [Suspect]
     Active Substance: ATEZOLIZUMAB
     Dosage: 3600 MG
     Route: 042
  48. ATEZOLIZUMAB. [Suspect]
     Active Substance: ATEZOLIZUMAB
     Dosage: 3600 MG
     Route: 042
  49. CARBOPLATIN. [Suspect]
     Active Substance: CARBOPLATIN
     Indication: BREAST CANCER METASTATIC
     Dosage: 240 MG, QW
     Route: 042
     Dates: start: 20181219, end: 20190117
  50. CARBOPLATIN. [Suspect]
     Active Substance: CARBOPLATIN
     Indication: HER2 POSITIVE BREAST CANCER
     Dosage: UNK
  51. PERTUZUMAB. [Suspect]
     Active Substance: PERTUZUMAB
     Dosage: 420 MG, TIW
     Route: 042
     Dates: start: 20151016, end: 20170324
  52. AMITRIPTYLINE [Concomitant]
     Active Substance: AMITRIPTYLINE
     Dosage: 10 MG, QD, (0.33 DAY)
     Route: 048
     Dates: start: 201608
  53. AMITRIPTYLINE [Concomitant]
     Active Substance: AMITRIPTYLINE
     Dosage: 10 MG, QD, (0.33 DAY)
     Route: 048
     Dates: start: 201608
  54. AMOXICILLIN. [Concomitant]
     Active Substance: AMOXICILLIN
     Dosage: 1500 MG, QD
     Route: 048
     Dates: start: 20160330, end: 20160406
  55. BUDESONIDE. [Concomitant]
     Active Substance: BUDESONIDE
     Dosage: 9 MG, QD (1/DAY)
     Route: 048
     Dates: start: 20180220
  56. CITALOPRAM [Concomitant]
     Active Substance: CITALOPRAM HYDROBROMIDE
     Dosage: 20 MG, QD
     Route: 048
  57. HALOPERIDOL. [Concomitant]
     Active Substance: HALOPERIDOL
     Dosage: UNK
  58. HUMALOG [Concomitant]
     Active Substance: INSULIN LISPRO
     Dosage: 3 DF, QD
     Route: 058
  59. LACTULOSE. [Concomitant]
     Active Substance: LACTULOSE
     Dosage: UNK
     Route: 065
  60. LANSOPRAZOLE. [Concomitant]
     Active Substance: LANSOPRAZOLE
     Dosage: 30 MG, QD (1/DAY)
     Route: 048
  61. LEVEMIR [Concomitant]
     Active Substance: INSULIN DETEMIR
     Indication: PRODUCT USED FOR UNKNOWN INDICATION
     Dosage: 38 DF, QD
     Route: 058
  62. LEVEMIR [Concomitant]
     Active Substance: INSULIN DETEMIR
     Dosage: 38 DF, QD, ((1/DAY)1 DF, QD)
     Route: 058
  63. METFORMIN [Concomitant]
     Active Substance: METFORMIN HYDROCHLORIDE
     Indication: PRODUCT USED FOR UNKNOWN INDICATION
     Dosage: 500 MG
     Route: 048
  64. METFORMIN [Concomitant]
     Active Substance: METFORMIN HYDROCHLORIDE
     Dosage: 500 MG, ( (0.5/DAY))
     Route: 048
  65. METFORMIN [Concomitant]
     Active Substance: METFORMIN HYDROCHLORIDE
     Dosage: 500 MILLIGRAM, BID (DOSE FORM: 245)
     Route: 048
  66. SENNOSIDE B [Concomitant]
     Active Substance: SENNOSIDE B
     Dosage: UNK
  67. ZOPICLONE [Concomitant]
     Active Substance: ZOPICLONE
     Dosage: 3.75 MG, QD
     Route: 048
     Dates: start: 20170812, end: 20170822
  68. DOCETAXEL. [Suspect]
     Active Substance: DOCETAXEL
     Dosage: 108 MG EVERY 3 WEEKS (CUMULATIVE DOSE TO FIRST REACTION: 704.7857 MG)
     Route: 042
     Dates: start: 20151016, end: 20160108
  69. ATEZOLIZUMAB. [Suspect]
     Active Substance: ATEZOLIZUMAB
     Dosage: 1200 MG, TID
     Route: 042
     Dates: start: 20170510, end: 20170628
  70. ATEZOLIZUMAB. [Suspect]
     Active Substance: ATEZOLIZUMAB
     Dosage: 1200 MG, TID
     Route: 042
     Dates: start: 20170510, end: 20170628
  71. TRASTUZUMAB. [Suspect]
     Active Substance: TRASTUZUMAB
     Dosage: 260 MG, QOW
     Route: 042
     Dates: start: 20150924, end: 20150924
  72. TRASTUZUMAB. [Suspect]
     Active Substance: TRASTUZUMAB
     Dosage: 450 MG, QOW
     Route: 042
     Dates: start: 20151016
  73. PERTUZUMAB. [Suspect]
     Active Substance: PERTUZUMAB
     Indication: BREAST CANCER METASTATIC
     Dosage: 840 MG, Q3W
     Route: 042
     Dates: start: 20150924, end: 20150924
  74. PERTUZUMAB. [Suspect]
     Active Substance: PERTUZUMAB
     Dosage: 420 MG, Q3W
     Route: 042
     Dates: start: 20151016, end: 20170324
  75. PERTUZUMAB. [Suspect]
     Active Substance: PERTUZUMAB
     Dosage: 840 MG, QD
     Route: 042
     Dates: start: 20150924, end: 20150924
  76. TRASTUZUMAB EMTANSINE [Suspect]
     Active Substance: ADO-TRASTUZUMAB EMTANSINE
     Dosage: 260 MG, Q3W
     Route: 042
     Dates: start: 20150924, end: 20150924
  77. AMOXICILLIN. [Concomitant]
     Active Substance: AMOXICILLIN
     Dosage: 500 MG
     Dates: start: 20160330, end: 20160406
  78. HUMALOG [Concomitant]
     Active Substance: INSULIN LISPRO
     Dosage: 3 DF (16 UNIT)
     Route: 058
  79. LANSOPRAZOLE. [Concomitant]
     Active Substance: LANSOPRAZOLE
     Indication: PRODUCT USED FOR UNKNOWN INDICATION
     Dosage: 30 MG, QD
     Route: 048
  80. ZOPICLONE [Concomitant]
     Active Substance: ZOPICLONE
     Indication: INSOMNIA
     Dosage: UNK
  81. DOCETAXEL. [Suspect]
     Active Substance: DOCETAXEL
     Dosage: 108 MG, Q3W
     Dates: start: 20151016, end: 20160108
  82. DOCETAXEL. [Suspect]
     Active Substance: DOCETAXEL
     Dosage: 108 MG, UNKNOWN (DOSE FORM: 230)
     Route: 042
     Dates: start: 20151016, end: 20160108
  83. DOCETAXEL. [Suspect]
     Active Substance: DOCETAXEL
     Dosage: 132 MG, Q3W
     Route: 042
     Dates: start: 20150925, end: 20151016
  84. ATEZOLIZUMAB. [Suspect]
     Active Substance: ATEZOLIZUMAB
     Dosage: 1200 MG, TID
     Route: 042
     Dates: start: 20170510, end: 20170628
  85. ATEZOLIZUMAB. [Suspect]
     Active Substance: ATEZOLIZUMAB
     Dosage: 1200 MG, TID
     Route: 042
     Dates: start: 20170510, end: 20170628
  86. ATEZOLIZUMAB. [Suspect]
     Active Substance: ATEZOLIZUMAB
     Dosage: 3600 MG
     Route: 042
  87. CAPECITABINE. [Suspect]
     Active Substance: CAPECITABINE
     Dosage: 3500 MG,  (MANUFACTURER UNKNOWN)
     Route: 048
     Dates: start: 20170905, end: 20171219
  88. CAPECITABINE. [Suspect]
     Active Substance: CAPECITABINE
     Dosage: 1500 MG, (MANUFACTURER UNKNOWN, 1500 MG AND 1000 MG)
     Dates: start: 20171128
  89. TRASTUZUMAB. [Suspect]
     Active Substance: TRASTUZUMAB
     Indication: HER2 POSITIVE BREAST CANCER
     Dosage: 450 MG, QOW
     Route: 042
     Dates: start: 20151016
  90. TRASTUZUMAB. [Suspect]
     Active Substance: TRASTUZUMAB
     Dosage: 600 MG, Q3W
     Route: 042
     Dates: start: 20150924, end: 20150924
  91. TRASTUZUMAB. [Suspect]
     Active Substance: TRASTUZUMAB
     Dosage: 260 MG, Q3W
     Route: 042
     Dates: start: 20150924, end: 20150924
  92. TRASTUZUMAB. [Suspect]
     Active Substance: TRASTUZUMAB
     Dosage: 450 MG, QOW
     Route: 042
     Dates: start: 20151016
  93. PERTUZUMAB. [Suspect]
     Active Substance: PERTUZUMAB
     Indication: HER2 POSITIVE BREAST CANCER
     Dosage: 420 MG, Q3W
     Route: 042
     Dates: start: 20170324, end: 20170324
  94. TRASTUZUMAB EMTANSINE [Suspect]
     Active Substance: ADO-TRASTUZUMAB EMTANSINE
     Indication: HER2 POSITIVE BREAST CANCER
     Dosage: 450 MG, Q3W
     Route: 042
     Dates: start: 20151016
  95. TRASTUZUMAB EMTANSINE [Suspect]
     Active Substance: ADO-TRASTUZUMAB EMTANSINE
     Dosage: 840 MG, Q3W
     Route: 042
     Dates: start: 20150924, end: 20150924
  96. TRASTUZUMAB EMTANSINE [Suspect]
     Active Substance: ADO-TRASTUZUMAB EMTANSINE
     Dosage: UNK
  97. TRASTUZUMAB EMTANSINE [Suspect]
     Active Substance: ADO-TRASTUZUMAB EMTANSINE
     Dosage: 780 MG, QW, (260 MG, 3/WEEK (CV))
     Route: 042
     Dates: start: 20150924, end: 20150924
  98. AMITRIPTYLINE [Concomitant]
     Active Substance: AMITRIPTYLINE
     Indication: NEUROPATHY PERIPHERAL
     Dosage: 10 MG, TID, ((0.33 DAY)/30 MG, QD)
     Route: 048
     Dates: start: 201608
  99. AMOXICILLIN. [Concomitant]
     Active Substance: AMOXICILLIN
     Indication: UPPER RESPIRATORY TRACT INFECTION
     Dosage: 500 MG, TID
     Route: 048
     Dates: start: 20160330, end: 20160406
  100. CITALOPRAM [Concomitant]
     Active Substance: CITALOPRAM HYDROBROMIDE
     Indication: PRODUCT USED FOR UNKNOWN INDICATION
     Dosage: 20 MG, QD
     Route: 048
  101. GLYCEROL [Concomitant]
     Active Substance: GLYCERIN
     Dosage: 4 G
     Route: 048
     Dates: start: 20180511
  102. HUMALOG [Concomitant]
     Active Substance: INSULIN LISPRO
     Dosage: 16 DF, TID
     Route: 058
  103. METFORMIN [Concomitant]
     Active Substance: METFORMIN HYDROCHLORIDE
     Dosage: 500 MG, BID
     Route: 065
  104. METFORMIN [Concomitant]
     Active Substance: METFORMIN HYDROCHLORIDE
     Dosage: 1000 MG, QD
     Route: 048
  105. OMEPRAZOLE. [Concomitant]
     Active Substance: OMEPRAZOLE
     Dosage: UNK
  106. ZOPICLONE [Concomitant]
     Active Substance: ZOPICLONE
     Dosage: 3.75 MG, QD
     Route: 048
     Dates: start: 20170812, end: 20170822
  107. DOCETAXEL. [Suspect]
     Active Substance: DOCETAXEL
     Indication: HER2 POSITIVE BREAST CANCER
     Dosage: 108 MG
     Route: 042
     Dates: start: 20151016
  108. ATEZOLIZUMAB. [Suspect]
     Active Substance: ATEZOLIZUMAB
     Indication: HER2 POSITIVE BREAST CANCER
     Dosage: UNK
  109. ATEZOLIZUMAB. [Suspect]
     Active Substance: ATEZOLIZUMAB
     Dosage: 1200 MG, Q3W
     Route: 042
     Dates: start: 20170510, end: 20170628
  110. CAPECITABINE. [Suspect]
     Active Substance: CAPECITABINE
     Dosage: 1500 MG, (MANUFACTURER UNKNOWN, 1500 MG AND 1000 MG)
     Dates: start: 20171128
  111. PERTUZUMAB. [Suspect]
     Active Substance: PERTUZUMAB
     Dosage: 840 MG, QD
     Route: 042
     Dates: start: 20150924, end: 20150924
  112. PERTUZUMAB. [Suspect]
     Active Substance: PERTUZUMAB
     Dosage: 840 MG, QD
     Route: 042
     Dates: start: 20150924, end: 20150924
  113. TRASTUZUMAB EMTANSINE [Suspect]
     Active Substance: ADO-TRASTUZUMAB EMTANSINE
     Indication: BREAST CANCER METASTATIC
     Dosage: 450 MG, TIW, (TARGETED THERAPY)
     Route: 042
     Dates: start: 20151016
  114. TRASTUZUMAB EMTANSINE [Suspect]
     Active Substance: ADO-TRASTUZUMAB EMTANSINE
     Dosage: 600 MG, Q3W
     Route: 042
  115. TRASTUZUMAB EMTANSINE [Suspect]
     Active Substance: ADO-TRASTUZUMAB EMTANSINE
     Dosage: 260 MG, Q3W
     Route: 042
     Dates: start: 20150924, end: 20150924
  116. BUDESONIDE. [Concomitant]
     Active Substance: BUDESONIDE
     Dosage: 9 MG, QD
     Route: 048
     Dates: start: 20180220
  117. GLYCEROL [Concomitant]
     Active Substance: GLYCERIN
     Dosage: 4 G
     Route: 048
     Dates: start: 20180511, end: 201805
  118. GLYCEROL [Concomitant]
     Active Substance: GLYCERIN
     Dosage: 4 G
     Route: 048
     Dates: start: 20180511, end: 201805
  119. HUMALOG [Concomitant]
     Active Substance: INSULIN LISPRO
     Indication: PRODUCT USED FOR UNKNOWN INDICATION
     Dosage: 16 IU, TID
     Route: 058
  120. LANSOPRAZOLE. [Concomitant]
     Active Substance: LANSOPRAZOLE
     Dosage: 30 MG, EVERY 1 DAY (DOSE FORM: 245)
     Route: 048
  121. METFORMIN [Concomitant]
     Active Substance: METFORMIN HYDROCHLORIDE
     Dosage: 1000 MG, EVERY 1 DAY (DOSE FORM: 245)
     Route: 048
  122. CAPECITABINE. [Suspect]
     Active Substance: CAPECITABINE
     Dosage: 1000 MG
     Route: 048
     Dates: start: 20171128, end: 20171219
  123. CAPECITABINE. [Suspect]
     Active Substance: CAPECITABINE
     Dosage: 1500 MG
     Dates: start: 20171128, end: 20171219
  124. TRASTUZUMAB. [Suspect]
     Active Substance: TRASTUZUMAB
     Dosage: 600 MG, QD
     Route: 042
     Dates: start: 20150924, end: 20150924
  125. TRASTUZUMAB. [Suspect]
     Active Substance: TRASTUZUMAB
     Dosage: 600 MG, Q3W
     Route: 042
     Dates: start: 20150924, end: 20150924
  126. ERIBULIN [Suspect]
     Active Substance: ERIBULIN
     Indication: HER2 POSITIVE BREAST CANCER
     Dosage: UNK
     Route: 065
  127. NERATINIB [Suspect]
     Active Substance: NERATINIB
     Indication: HER2 POSITIVE BREAST CANCER
     Dosage: UNK
  128. PERTUZUMAB. [Suspect]
     Active Substance: PERTUZUMAB
     Dosage: 1260 MG, Q3W
     Route: 042
     Dates: start: 20170324
  129. PERTUZUMAB. [Suspect]
     Active Substance: PERTUZUMAB
     Dosage: 840 MG, QD
     Route: 042
     Dates: start: 20150924, end: 20150924
  130. PERTUZUMAB. [Suspect]
     Active Substance: PERTUZUMAB
     Dosage: 840 MG, QD
     Route: 042
     Dates: start: 20150924, end: 20150924
  131. CITALOPRAM [Concomitant]
     Active Substance: CITALOPRAM HYDROBROMIDE
     Dosage: 20 MILLIGRAM, QD (DOSE FORM: 245)
     Route: 048
  132. LEVEMIR [Concomitant]
     Active Substance: INSULIN DETEMIR
     Dosage: UNK
     Route: 058
  133. LOPERAMIDE [Concomitant]
     Active Substance: LOPERAMIDE
     Indication: PRODUCT USED FOR UNKNOWN INDICATION
     Dosage: 2 MG
     Route: 048
     Dates: start: 20150922, end: 20160122
  134. METFORMIN [Concomitant]
     Active Substance: METFORMIN HYDROCHLORIDE
     Dosage: 500 MG (0.5/DAY)
     Route: 048
  135. RANITIDINE. [Concomitant]
     Active Substance: RANITIDINE
     Dosage: UNK
  136. DOCETAXEL. [Suspect]
     Active Substance: DOCETAXEL
     Indication: BREAST CANCER METASTATIC
     Dosage: 108 MG, Q3W
     Route: 042
     Dates: start: 20151016, end: 20160108
  137. ATEZOLIZUMAB. [Suspect]
     Active Substance: ATEZOLIZUMAB
     Dosage: 1200 MG, QOW
     Route: 042
     Dates: start: 20170510, end: 20170628
  138. CAPECITABINE. [Suspect]
     Active Substance: CAPECITABINE
     Dosage: 3500 MG
     Route: 048
     Dates: start: 20170905
  139. TRASTUZUMAB. [Suspect]
     Active Substance: TRASTUZUMAB
     Dosage: 450 MG, Q3W
     Route: 042
     Dates: start: 20151016
  140. TRASTUZUMAB. [Suspect]
     Active Substance: TRASTUZUMAB
     Dosage: 600 MG, QD
     Route: 042
     Dates: start: 20150924, end: 20150924
  141. TRASTUZUMAB. [Suspect]
     Active Substance: TRASTUZUMAB
     Dosage: 450 MG, QOW
     Route: 042
     Dates: start: 20151016
  142. ERIBULIN MESYLATE [Suspect]
     Active Substance: ERIBULIN MESYLATE
     Indication: BREAST CANCER METASTATIC
     Dosage: 2.5 MG
     Route: 042
     Dates: start: 20180822, end: 20181010
  143. NERATINIB [Suspect]
     Active Substance: NERATINIB
     Dosage: 240 MG, QD, (MANUFACTURER UNKNOWN)
     Route: 048
     Dates: start: 20180220, end: 20180717
  144. PERTUZUMAB. [Suspect]
     Active Substance: PERTUZUMAB
     Dosage: 840 MG/M2, Q3W
     Route: 042
     Dates: start: 20150924, end: 20150924
  145. PERTUZUMAB. [Suspect]
     Active Substance: PERTUZUMAB
     Dosage: 420 MG, Q3W
     Route: 042
     Dates: start: 20170324, end: 20170324
  146. PERTUZUMAB. [Suspect]
     Active Substance: PERTUZUMAB
     Dosage: 840 MG, QD
     Route: 042
     Dates: start: 20150924, end: 20150924
  147. TRASTUZUMAB EMTANSINE [Suspect]
     Active Substance: ADO-TRASTUZUMAB EMTANSINE
     Dosage: 260 MG, Q3W
     Route: 042
     Dates: start: 20150924, end: 20150924
  148. AMITRIPTYLINE [Concomitant]
     Active Substance: AMITRIPTYLINE
     Dosage: 10 MG, TID, ((0.33 DAY)/30 MG, QD)
     Route: 048
     Dates: start: 201608
  149. BUDESONIDE. [Concomitant]
     Active Substance: BUDESONIDE
     Indication: PRODUCT USED FOR UNKNOWN INDICATION
     Dosage: 9 MG, QD, (DOSE FORM: 5)
     Route: 048
     Dates: start: 20180220
  150. DOMPERIDONE [Concomitant]
     Active Substance: DOMPERIDONE
     Dosage: UNK
  151. HYOSCINE N?BUTYLBROMIDE [Concomitant]
     Active Substance: BUTYLSCOPOLAMINE
     Indication: PRODUCT USED FOR UNKNOWN INDICATION
     Dosage: 20 MG, TID
     Route: 048
     Dates: start: 20171219, end: 2018
  152. LANSOPRAZOLE. [Concomitant]
     Active Substance: LANSOPRAZOLE
     Dosage: 30 MILLIGRAM, QD (DOSE FORM: 245)
     Route: 048
  153. MACROGOL [Concomitant]
     Active Substance: POLYETHYLENE GLYCOLS
     Dosage: UNK

REACTIONS (9)
  - Constipation [Recovered/Resolved]
  - Hyperglycaemia [Recovered/Resolved]
  - Cough [Recovered/Resolved]
  - Constipation [Recovered/Resolved]
  - Upper respiratory tract infection [Recovered/Resolved]
  - Hot flush [Recovered/Resolved]
  - Aphonia [Recovered/Resolved]
  - Neuropathy peripheral [Recovered/Resolved]
  - Off label use [Unknown]

NARRATIVE: CASE EVENT DATE: 201603
